FAERS Safety Report 8574934-0 (Version None)
Quarter: 2012Q3

REPORT INFORMATION
  Report Type: 
  Country: None (occurrence: None)
  Receive Date: 20120807
  Receipt Date: 20120726
  Transmission Date: 20120928
  Serious: Yes (Hospitalization)
  Sender: FDA-Public Use
  Company Number: US-BAYER-2012-030275

PATIENT
  Age: 37 Year
  Sex: Female
  Weight: 72.562 kg

DRUGS (16)
  1. YAZ [Suspect]
     Indication: PREMENSTRUAL SYNDROME
  2. LEVOTHYROXINE SODIUM [Concomitant]
     Indication: HYPOTHYROIDISM
     Dosage: 25 MG, DAILY
     Dates: start: 19930101
  3. TYLENOL [Concomitant]
     Dosage: PRN
  4. FLUCONAZOLE [Concomitant]
     Dosage: 100 MG, UNK
     Dates: start: 20080910
  5. YASMIN [Suspect]
     Indication: CONTRACEPTION
     Dosage: UNK
     Dates: start: 20031009, end: 20070321
  6. NAPROXEN (ALEVE) [Concomitant]
  7. DARVOCET-N 50 [Concomitant]
  8. YAZ [Suspect]
     Indication: DYSMENORRHOEA
  9. AZITHROMYCIN [Concomitant]
     Dosage: 250 MG, UNK
     Dates: start: 20080910
  10. YASMIN [Suspect]
     Indication: DYSMENORRHOEA
  11. YASMIN [Suspect]
     Indication: PREMENSTRUAL SYNDROME
  12. SYNTHROID [Concomitant]
  13. ZITHROMAX [Concomitant]
     Dosage: UNK
     Dates: start: 20020101
  14. IBUPROFEN [Concomitant]
     Dosage: UNK
     Dates: start: 19940101
  15. YAZ [Suspect]
     Indication: CONTRACEPTION
     Dosage: UNK
     Dates: start: 20070321, end: 20090929
  16. AVELOX [Concomitant]
     Dosage: 400 MG, UNK
     Dates: start: 20080806

REACTIONS (4)
  - PULMONARY EMBOLISM [None]
  - DYSPNOEA [None]
  - DEEP VEIN THROMBOSIS [None]
  - BACK PAIN [None]
